FAERS Safety Report 20062545 (Version 1)
Quarter: 2021Q4

REPORT INFORMATION
  Report Type: Spontaneous
  Country: DE (occurrence: None)
  Receive Date: 20211112
  Receipt Date: 20211112
  Transmission Date: 20220303
  Serious: Yes (Other)
  Sender: FDA-Public Use
  Company Number: 2021A798487

PATIENT
  Sex: Male
  Weight: 130 kg

DRUGS (1)
  1. ROSUVASTATIN [Suspect]
     Active Substance: ROSUVASTATIN
     Indication: Blood cholesterol increased
     Dosage: 1 X TGL.
     Route: 048
     Dates: start: 20210921, end: 20211022

REACTIONS (7)
  - Muscle rupture [Not Recovered/Not Resolved]
  - Respiratory distress [Not Recovered/Not Resolved]
  - Hypotonia [Not Recovered/Not Resolved]
  - Malaise [Unknown]
  - Muscular weakness [Not Recovered/Not Resolved]
  - Myalgia [Recovered/Resolved with Sequelae]
  - Muscle spasms [Recovered/Resolved with Sequelae]

NARRATIVE: CASE EVENT DATE: 20210901
